FAERS Safety Report 7916485-X (Version None)
Quarter: 2011Q4

REPORT INFORMATION
  Report Type: 
  Country: None (occurrence: None)
  Receive Date: 20111114
  Receipt Date: 20111104
  Transmission Date: 20120403
  Serious: Yes (Death)
  Sender: FDA-Public Use
  Company Number: ADR-2011-11311

PATIENT
  Sex: Male

DRUGS (3)
  1. MORPHINE, DILAUDID [Concomitant]
  2. BACLOFEN [Suspect]
     Indication: MUSCLE SPASTICITY
     Dosage: SEE B5, INTRATHECAL
     Route: 037
  3. BACLOFEN [Suspect]
     Indication: BRAIN INJURY
     Dosage: SEE B5, INTRATHECAL
     Route: 037

REACTIONS (1)
  - DISEASE PROGRESSION [None]
